FAERS Safety Report 8518591-8 (Version None)
Quarter: 2012Q3

REPORT INFORMATION
  Report Type: 
  Country: None (occurrence: None)
  Receive Date: 20120718
  Receipt Date: 20120120
  Transmission Date: 20120928
  Serious: No
  Sender: FDA-Public Use
  Company Number: US-BRISTOL-MYERS SQUIBB COMPANY-14482319

PATIENT
  Age: 62 Year
  Sex: Female
  Weight: 65 kg

DRUGS (1)
  1. COUMADIN [Suspect]
     Indication: CARDIAC OPERATION
     Dosage: 5MG, LOT# 0E59235B, EX DATE: MAY 2013, NDC: 0056-0172-70.  5MG+4MG
     Route: 048

REACTIONS (3)
  - STRESS [None]
  - INTERNATIONAL NORMALISED RATIO FLUCTUATION [None]
  - NASOPHARYNGITIS [None]
